FAERS Safety Report 10364383 (Version 1)
Quarter: 2014Q3

REPORT INFORMATION
  Report Type: Spontaneous
  Country: US (occurrence: None)
  Receive Date: 20140804
  Receipt Date: 20140804
  Transmission Date: 20150326
  Serious: Yes (Hospitalization)
  Sender: FDA-Public Use
  Company Number: None

PATIENT
  Age: 62 Year
  Sex: Female
  Weight: 68.04 kg

DRUGS (10)
  1. BONIVA [Concomitant]
     Active Substance: IBANDRONATE SODIUM
  2. MVI [Concomitant]
     Active Substance: VITAMINS
  3. ONFI [Concomitant]
     Active Substance: CLOBAZAM
  4. ZONEGRAN [Concomitant]
     Active Substance: ZONISAMIDE
  5. OMEPRAZOLE. [Concomitant]
     Active Substance: OMEPRAZOLE
  6. APTIOM [Suspect]
     Active Substance: ESLICARBAZEPINE ACETATE
     Indication: COMPLEX PARTIAL SEIZURES
     Dosage: 1 PILL AT BEDTIME TAKEN BY MOUTH
     Route: 048
     Dates: start: 20140629, end: 20140702
  7. KEPPRA [Concomitant]
     Active Substance: LEVETIRACETAM
  8. FISH OIL [Concomitant]
     Active Substance: FISH OIL
  9. RISPERADONE [Concomitant]
     Active Substance: RISPERIDONE
  10. CALCIUM [Concomitant]
     Active Substance: CALCIUM

REACTIONS (4)
  - Fatigue [None]
  - Blood sodium decreased [None]
  - Fall [None]
  - Asthenia [None]

NARRATIVE: CASE EVENT DATE: 20140703
